FAERS Safety Report 9364997 (Version 1)
Quarter: 2013Q2

REPORT INFORMATION
  Report Type: Spontaneous
  Country: US (occurrence: US)
  Receive Date: 20130624
  Receipt Date: 20130624
  Transmission Date: 20140414
  Serious: No
  Sender: FDA-Public Use
  Company Number: US-PFIZER INC-2013186738

PATIENT
  Age: 57 Year
  Sex: Female
  Weight: 64.4 kg

DRUGS (3)
  1. LYRICA [Suspect]
     Indication: NEURALGIA
     Dosage: 225 MG, 1X/DAY
     Route: 048
  2. LEVOXYL [Concomitant]
     Indication: THYROID DISORDER
     Dosage: UNK
  3. LIPITOR [Concomitant]
     Dosage: UNK

REACTIONS (6)
  - Sensation of foreign body [Unknown]
  - Throat irritation [Unknown]
  - Increased upper airway secretion [Unknown]
  - Cough [Unknown]
  - Sneezing [Unknown]
  - Upper-airway cough syndrome [Unknown]
